FAERS Safety Report 8997451 (Version 13)
Quarter: 2020Q3

REPORT INFORMATION
  Report Type: Report from Study
  Country: FR (occurrence: FR)
  Receive Date: 20130104
  Receipt Date: 20130701
  Transmission Date: 20201104
  Serious: Yes (Death, Hospitalization)
  Sender: FDA-Public Use
  Company Number: FR-ASTELLAS-2013US000187

PATIENT
  Age: 79 Year
  Sex: Female
  Weight: 66 kg

DRUGS (22)
  1. PREVISCAN (FLUINDIONE) [Concomitant]
     Active Substance: FLUINDIONE
     Indication: ARRHYTHMIA
     Dosage: UNK
     Route: 065
     Dates: start: 1987, end: 20130329
  2. ALPRAZOLAM. [Concomitant]
     Active Substance: ALPRAZOLAM
     Indication: ANXIETY
     Dosage: UNK
     Route: 065
  3. ONARTUZUMAB. [Suspect]
     Active Substance: ONARTUZUMAB
     Indication: NON-SMALL CELL LUNG CANCER
     Dosage: 1126 MG, Q3W
     Route: 042
     Dates: start: 20121105
  4. ONARTUZUMAB. [Suspect]
     Active Substance: ONARTUZUMAB
     Dosage: 1126 MG, Q3W
     Route: 042
  5. ROCEPHINE [Concomitant]
     Active Substance: CEFTRIAXONE SODIUM
     Indication: URINARY TRACT INFECTION
     Dosage: UNK
     Route: 065
     Dates: start: 20130312, end: 20130318
  6. APROVEL [Concomitant]
     Active Substance: IRBESARTAN
     Indication: HYPERTENSION
     Dosage: UNK
     Route: 065
     Dates: start: 2011
  7. PARACETAMOL [Concomitant]
     Active Substance: ACETAMINOPHEN
     Indication: PAIN
     Dosage: UNK
     Route: 065
     Dates: start: 2011
  8. LOPERAMIDE [Concomitant]
     Active Substance: LOPERAMIDE
     Indication: DIARRHOEA
     Dosage: UNK
     Route: 065
     Dates: start: 201212
  9. AMOXICILLIN. [Concomitant]
     Active Substance: AMOXICILLIN
     Indication: PYREXIA
     Dosage: UNK
     Route: 065
     Dates: start: 20121202, end: 20121209
  10. LAMALINE                           /01708901/ [Concomitant]
     Indication: PAIN
     Dosage: UNK
     Route: 065
     Dates: start: 2011
  11. PRETERAX                           /01421201/ [Concomitant]
     Indication: HYPERTENSION
     Dosage: UNK
     Route: 065
     Dates: start: 201211
  12. PRIMPERAN [Concomitant]
     Active Substance: METOCLOPRAMIDE HYDROCHLORIDE
     Indication: NAUSEA
     Dosage: UNK
     Route: 065
     Dates: start: 201212
  13. ULCAR                              /00434701/ [Concomitant]
     Indication: PRODUCT USED FOR UNKNOWN INDICATION
     Dosage: UNK
     Route: 065
     Dates: start: 201302
  14. ERLOTINIB TABLET [Suspect]
     Active Substance: ERLOTINIB
     Indication: NON-SMALL CELL LUNG CANCER
     Dosage: 100 MG, UID/QD
     Route: 048
     Dates: start: 20121105
  15. NEURONTIN [Concomitant]
     Active Substance: GABAPENTIN
     Indication: PARAESTHESIA
     Dosage: UNK
     Route: 065
     Dates: start: 2012
  16. NOCTAMIDE [Concomitant]
     Active Substance: LORMETAZEPAM
     Indication: INSOMNIA
     Dosage: UNK
     Route: 065
  17. GLUCIDION [Concomitant]
     Active Substance: GLUCOSE, LIQUID\POTASSIUM CHLORIDE\SODIUM CHLORIDE
     Indication: WEIGHT DECREASED
     Dosage: UNK
     Route: 065
     Dates: start: 20121220, end: 20121223
  18. AUGMENTIN [Concomitant]
     Active Substance: AMOXICILLIN\CLAVULANATE POTASSIUM
     Indication: PYREXIA
     Dosage: UNK
     Route: 065
     Dates: start: 20121214, end: 20121218
  19. TETANUS TOXOID ADSORBED (VACCINE) [Concomitant]
     Active Substance: CLOSTRIDIUM TETANI TOXOID ANTIGEN (FORMALDEHYDE INACTIVATED)
     Indication: PRODUCT USED FOR UNKNOWN INDICATION
     Dosage: UNK
     Route: 065
     Dates: start: 20130214, end: 20130214
  20. ROCEPHINE [Concomitant]
     Active Substance: CEFTRIAXONE SODIUM
     Indication: PYREXIA
     Dosage: UNK
     Route: 065
     Dates: start: 20121210, end: 20121213
  21. LERCANIDIPINE [Concomitant]
     Active Substance: LERCANIDIPINE
     Indication: HYPERTENSION
     Dosage: UNK
     Route: 065
     Dates: start: 2011
  22. POTASSIUM [Concomitant]
     Active Substance: POTASSIUM
     Indication: PRODUCT USED FOR UNKNOWN INDICATION
     Dosage: UNK
     Route: 065

REACTIONS (6)
  - Acute kidney injury [Fatal]
  - Incorrect dose administered [Unknown]
  - Varicose ulceration [Not Recovered/Not Resolved]
  - Chondrocalcinosis [Not Recovered/Not Resolved]
  - Urinary tract infection [Recovered/Resolved]
  - Oedema peripheral [Not Recovered/Not Resolved]

NARRATIVE: CASE EVENT DATE: 201212
